FAERS Safety Report 10419159 (Version 1)
Quarter: 2014Q2

REPORT INFORMATION
  Report Type: Spontaneous
  Country: US (occurrence: None)
  Receive Date: 20140617
  Receipt Date: 20140617
  Transmission Date: 20141212
  Serious: Yes (Other)
  Sender: FDA-Public Use
  Company Number: 1251258

PATIENT
  Age: 53 Year
  Sex: Female
  Weight: 64.09 kg

DRUGS (11)
  1. ACTERMA 5% TWO INFUSION DOSES [Suspect]
     Indication: RHEUMATOID ARTHRITIS
     Dosage: (8 MG/KG, 1 IN 4 WK), INTRAVENOUS (NOT OTHERWISE SPECIFIED)
     Route: 042
     Dates: start: 20111020
  2. METHOTREXATE (INJECTION) [Concomitant]
  3. LIPITOR (ATORVASTATIN CALCIUM) [Concomitant]
  4. FOLIC ACID [Concomitant]
  5. ACTONEL (RISEDRONATE SODIUM) [Concomitant]
  6. BENICAR (OLMESARTAN MEDOXOMIL) [Concomitant]
  7. FLEXERIL (UNITED STATES) (CYCLOBENZAPRINE HYDROCHLORIDE) [Concomitant]
  8. NEURONTIN (UNITED STATES) (GABAPENTIN) [Concomitant]
  9. PLAQUENIL (HYDROCHLOROQUINE SULFATE0 (TABLET) [Concomitant]
  10. VOLTAREN (DICLOFENAC SODIUM) [Concomitant]
  11. CELEBREX (CELECOXIB) [Concomitant]

REACTIONS (1)
  - Neutropenia [None]
